FAERS Safety Report 9297011 (Version 1)
Quarter: 2013Q2

REPORT INFORMATION
  Report Type: Spontaneous
  Country: DE (occurrence: DE)
  Receive Date: 20130518
  Receipt Date: 20130518
  Transmission Date: 20140414
  Serious: Yes (Hospitalization)
  Sender: FDA-Public Use
  Company Number: DE-ROCHE-1225313

PATIENT
  Sex: Female
  Weight: 55 kg

DRUGS (5)
  1. MABTHERA [Suspect]
     Indication: POST TRANSPLANT LYMPHOPROLIFERATIVE DISORDER
     Route: 042
     Dates: start: 20130413
  2. TACROLIMUS [Concomitant]
  3. VINCRISTIN [Concomitant]
     Route: 042
     Dates: start: 20130414
  4. CYCLOPHOSPHAMID [Concomitant]
     Route: 042
     Dates: start: 20130414
  5. DOXORUBICIN [Concomitant]
     Route: 042
     Dates: start: 20130414

REACTIONS (3)
  - Oedema [Recovered/Resolved]
  - Oliguria [Recovered/Resolved]
  - Immunosuppressant drug level decreased [Recovered/Resolved]
